FAERS Safety Report 18679915 (Version 3)
Quarter: 2021Q1

REPORT INFORMATION
  Report Type: Spontaneous
  Country: MX (occurrence: MX)
  Receive Date: 20201229
  Receipt Date: 20210225
  Transmission Date: 20210419
  Serious: Yes (Other)
  Sender: FDA-Public Use
  Company Number: MX-NOVOPROD-777114

PATIENT
  Age: 70 Year
  Sex: Female
  Weight: 64 kg

DRUGS (2)
  1. XULTOPHY 100/3.6 [Suspect]
     Active Substance: INSULIN DEGLUDEC\LIRAGLUTIDE
     Dosage: UNK
     Route: 065
     Dates: start: 20210106
  2. XULTOPHY 100/3.6 [Suspect]
     Active Substance: INSULIN DEGLUDEC\LIRAGLUTIDE
     Indication: TYPE 2 DIABETES MELLITUS
     Dosage: 30 IU, QD
     Route: 065
     Dates: start: 20201112

REACTIONS (3)
  - Blood glucose increased [Recovered/Resolved]
  - Incorrect dose administered by device [Unknown]
  - Device leakage [Unknown]

NARRATIVE: CASE EVENT DATE: 20201221
